FAERS Safety Report 17377472 (Version 1)
Quarter: 2020Q1

REPORT INFORMATION
  Report Type: Spontaneous
  Country: US (occurrence: US)
  Receive Date: 20200122
  Receipt Date: 20200122
  Transmission Date: 20200409
  Serious: Yes (Hospitalization, Disabling)
  Sender: FDA-Public Use
  Company Number: None

PATIENT

DRUGS (3)
  1. CLOZARIL [Suspect]
     Active Substance: CLOZAPINE
     Indication: SCHIZOAFFECTIVE DISORDER
     Dosage: ?          QUANTITY:1;OTHER ROUTE:INJECTION + BY MOUTH?
     Dates: start: 201104
  2. INVEGA SUSTENNA [Suspect]
     Active Substance: PALIPERIDONE PALMITATE
  3. COGENTIN [Suspect]
     Active Substance: BENZTROPINE MESYLATE

REACTIONS (8)
  - Lethargy [None]
  - Thirst [None]
  - Hunger [None]
  - Pollakiuria [None]
  - Constipation [None]
  - Pain [None]
  - Diarrhoea [None]
  - Pruritus [None]
